FAERS Safety Report 6217531-4 (Version None)
Quarter: 2009Q2

REPORT INFORMATION
  Report Type: 
  Country: None (occurrence: None)
  Receive Date: 20090608
  Receipt Date: 20090306
  Transmission Date: 20091009
  Serious: No
  Sender: FDA-Public Use
  Company Number: A0765094A

PATIENT
  Age: 53 Year
  Sex: Female

DRUGS (7)
  1. BUPROPION HYDROCHLORIDE [Suspect]
     Indication: DEPRESSION
     Dosage: 150MG THREE TIMES PER DAY
     Route: 048
     Dates: start: 20080901, end: 20081001
  2. ADDERALL 10 [Concomitant]
  3. PROZAC [Concomitant]
  4. CRESTOR [Concomitant]
  5. ANTIBODIES [Concomitant]
     Route: 042
  6. VIVAGLOBIN [Concomitant]
  7. ZYRTEC [Concomitant]

REACTIONS (2)
  - DRUG EFFECT DECREASED [None]
  - DRUG INEFFECTIVE [None]
